FAERS Safety Report 8663208 (Version 2)
Quarter: 2013Q1

REPORT INFORMATION
  Report Type: Spontaneous
  Country: BR (occurrence: BR)
  Receive Date: 20120713
  Receipt Date: 20130114
  Transmission Date: 20140127
  Serious: Yes (Death, Hospitalization)
  Sender: FDA-Public Use
  Company Number: PHHY2012BR059547

PATIENT
  Age: 87 None
  Sex: Male
  Weight: 66 kg

DRUGS (3)
  1. EXELON PATCH [Suspect]
     Indication: MEMORY IMPAIRMENT
     Dosage: 4.6 MG (9MG/5CM2) PER DAY
     Route: 062
  2. EXELON PATCH [Suspect]
     Dosage: 9.5 MG (18MG/10CM2) PER DAY
     Route: 062
  3. DIOVAN [Suspect]
     Indication: HYPERTENSION
     Dosage: 2 DF (ONE TAB OF 160 MG IN THE MORNING AND ONE TAB OF 80 MG AT NIGHT),

REACTIONS (7)
  - Arrhythmia [Fatal]
  - Pneumonia [Fatal]
  - Convulsion [Unknown]
  - General physical health deterioration [Unknown]
  - Movement disorder [Unknown]
  - Depression [Unknown]
  - Memory impairment [Unknown]
